FAERS Safety Report 6318687-5 (Version None)
Quarter: 2009Q3

REPORT INFORMATION
  Report Type: 
  Country: None (occurrence: None)
  Receive Date: 20090821
  Receipt Date: 20090814
  Transmission Date: 20100115
  Serious: Yes (Hospitalization, Other)
  Sender: FDA-Public Use
  Company Number: DE-AMGEN-US360322

PATIENT
  Age: 39 Year
  Sex: Male

DRUGS (3)
  1. ENBREL [Suspect]
     Indication: PSORIATIC ARTHROPATHY
     Route: 058
     Dates: start: 20080401
  2. LANTAREL [Suspect]
     Indication: ANKYLOSING SPONDYLITIS
     Route: 058
  3. ASPIRIN [Concomitant]

REACTIONS (3)
  - CEREBROVASCULAR ACCIDENT [None]
  - LOW DENSITY LIPOPROTEIN INCREASED [None]
  - LYMPHOCYTE COUNT INCREASED [None]
